FAERS Safety Report 6496433-2 (Version None)
Quarter: 2009Q4

REPORT INFORMATION
  Report Type: 
  Country: None (occurrence: None)
  Receive Date: 20091210
  Receipt Date: 20091204
  Transmission Date: 20100525
  Serious: Yes (Other)
  Sender: FDA-Public Use
  Company Number: 2009SP016122

PATIENT
  Age: 64 Year
  Sex: Female

DRUGS (5)
  1. PEG-INTRON [Suspect]
     Indication: HEPATITIS C
     Dosage: 150 MCG;QW;SC
     Route: 058
     Dates: start: 20090504
  2. RIBAVIRIN [Suspect]
     Indication: HEPATITIS C
     Dosage: 1200 MG;QD;PO
     Route: 048
     Dates: start: 20090504
  3. ELTROMBOPAG [Suspect]
     Indication: THROMBOCYTOPENIA
     Dosage: 25 MG;QD; PO; 50 MG;QD;PO
     Route: 048
     Dates: start: 20090420, end: 20090503
  4. ELTROMBOPAG [Suspect]
     Indication: THROMBOCYTOPENIA
     Dosage: 25 MG;QD; PO; 50 MG;QD;PO
     Route: 048
     Dates: start: 20090504, end: 20090510
  5. ELTROMBOPAG [Suspect]
     Indication: THROMBOCYTOPENIA
     Dosage: 25 MG;QD; PO; 50 MG;QD;PO
     Route: 048
     Dates: start: 20090511

REACTIONS (2)
  - NODULE [None]
  - RETINAL VASCULAR DISORDER [None]
